FAERS Safety Report 24898834 (Version 2)
Quarter: 2025Q1

REPORT INFORMATION
  Report Type: Spontaneous
  Country: CN (occurrence: CN)
  Receive Date: 20250129
  Receipt Date: 20250206
  Transmission Date: 20250409
  Serious: Yes (Hospitalization, Other)
  Sender: Phathom Pharmaceuticals
  Company Number: CN-PHATHOM PHARMACEUTICALS INC.-2025PHT00145

PATIENT
  Age: 38 Year
  Sex: Male
  Weight: 70 kg

DRUGS (2)
  1. VONOPRAZAN [Suspect]
     Active Substance: VONOPRAZAN
     Indication: Helicobacter infection
     Dosage: 20 MG, 2X/DAY
     Route: 048
     Dates: start: 20250103, end: 20250107
  2. AMOXICILLIN [Concomitant]
     Active Substance: AMOXICILLIN
     Dates: start: 20250103, end: 20250107

REACTIONS (3)
  - Facial paralysis [Recovering/Resolving]
  - Hypogeusia [Recovering/Resolving]
  - Discomfort [Unknown]

NARRATIVE: CASE EVENT DATE: 20250105
